FAERS Safety Report 16869188 (Version 1)
Quarter: 2019Q3

REPORT INFORMATION
  Report Type: Spontaneous
  Country: JP (occurrence: JP)
  Receive Date: 20190930
  Receipt Date: 20190930
  Transmission Date: 20191005
  Serious: Yes (Death)
  Sender: FDA-Public Use
  Company Number: JP-CERECOR, INC.-2019CER00110

PATIENT
  Age: 50 Year
  Sex: Male

DRUGS (9)
  1. RED BLOOD CELLS [Concomitant]
     Active Substance: HUMAN RED BLOOD CELL
     Dosage: 4 U
     Route: 042
  2. RASBURICASE [Concomitant]
     Active Substance: RASBURICASE
     Dosage: 7.5 MG, 1X/DAY
     Route: 065
  3. FRESH FROZEN PLASMA [Concomitant]
     Active Substance: HUMAN PLASMA
     Dosage: 2 U
     Route: 042
  4. MEROPENEM. [Concomitant]
     Active Substance: MEROPENEM
     Dosage: 3 G, 1X/DAY
     Route: 065
  5. NORADRENALINE [Concomitant]
     Active Substance: NOREPINEPHRINE
     Dosage: 0.5 ?G/KG, CONTINUOUS/MIN
     Route: 065
  6. VASOPRESSIN. [Concomitant]
     Active Substance: VASOPRESSIN
     Dosage: 1 U, CONTINUOUS/HR
     Route: 065
  7. FILGRASTIM [Concomitant]
     Active Substance: FILGRASTIM
     Dosage: 150 ?G
     Route: 065
  8. PREDNISOLONE. [Suspect]
     Active Substance: PREDNISOLONE
     Indication: B PRECURSOR TYPE ACUTE LEUKAEMIA
     Dosage: 60 MG, 1X/DAY
     Route: 065
  9. PLATELETS [Concomitant]
     Active Substance: HUMAN PLATELET, ALLOGENIC
     Dosage: 20 U
     Route: 042

REACTIONS (8)
  - Myocardial necrosis [Fatal]
  - Disseminated intravascular coagulation [Fatal]
  - Cardiac failure acute [Fatal]
  - Acute myocardial infarction [Fatal]
  - Myocardial calcification [Fatal]
  - Hyperphosphataemia [Fatal]
  - Tumour lysis syndrome [Fatal]
  - Multiple organ dysfunction syndrome [Fatal]
